FAERS Safety Report 16544173 (Version 1)
Quarter: 2019Q3

REPORT INFORMATION
  Report Type: Spontaneous
  Country: US (occurrence: US)
  Receive Date: 20190709
  Receipt Date: 20190709
  Transmission Date: 20191004
  Serious: Yes (Other)
  Sender: FDA-Public Use
  Company Number: US-PFIZER INC-2019292916

PATIENT
  Age: 30 Year
  Sex: Male
  Weight: 122.4 kg

DRUGS (3)
  1. DILANTIN [Suspect]
     Active Substance: PHENYTOIN
     Indication: EPILEPSY
     Dosage: UNK
     Route: 048
     Dates: start: 1998
  2. TOPIRAMATE. [Suspect]
     Active Substance: TOPIRAMATE
     Dosage: UNK, 3X/DAY
     Dates: start: 2008, end: 2008
  3. TOPIRAMATE. [Suspect]
     Active Substance: TOPIRAMATE
     Indication: EPILEPSY
     Dosage: UNK, 3X/DAY
     Dates: start: 2006, end: 2006

REACTIONS (2)
  - Seizure [Unknown]
  - Condition aggravated [Unknown]

NARRATIVE: CASE EVENT DATE: 2006
